FAERS Safety Report 9626326 (Version 1)
Quarter: 2013Q4

REPORT INFORMATION
  Report Type: Spontaneous
  Country: GB (occurrence: GB)
  Receive Date: 20131016
  Receipt Date: 20131016
  Transmission Date: 20140711
  Serious: Yes (Other)
  Sender: FDA-Public Use
  Company Number: GB-JNJFOC-20131005539

PATIENT
  Age: 29 Year
  Sex: Female

DRUGS (3)
  1. HALOPERIDOL [Suspect]
     Indication: SCHIZOPHRENIA
     Route: 048
  2. ZAPONEX [Suspect]
     Indication: PRODUCT USED FOR UNKNOWN INDICATION
     Route: 048
     Dates: start: 20130524
  3. ZAPONEX [Suspect]
     Indication: PRODUCT USED FOR UNKNOWN INDICATION
     Route: 048
     Dates: start: 20110302, end: 20130522

REACTIONS (7)
  - Blood bicarbonate decreased [Unknown]
  - Blood chloride increased [Unknown]
  - Blood cholesterol increased [Unknown]
  - Blood creatine phosphokinase increased [Unknown]
  - False positive investigation result [Recovered/Resolved]
  - Neutropenia [Recovered/Resolved]
  - White blood cell count decreased [Recovered/Resolved]
